FAERS Safety Report 21557268 (Version 2)
Quarter: 2022Q4

REPORT INFORMATION
  Report Type: Spontaneous
  Country: AR (occurrence: AR)
  Receive Date: 20221105
  Receipt Date: 20221110
  Transmission Date: 20230113
  Serious: Yes (Hospitalization, Disabling, Other)
  Sender: FDA-Public Use
  Company Number: None

PATIENT
  Age: 68 Year
  Sex: Female

DRUGS (4)
  1. IBUPROFEN [Suspect]
     Active Substance: IBUPROFEN
     Indication: Headache
     Dosage: 600 MILLIGRAM, PRN (AS NECESSARY, OCCASIONALLY) CAPSULE
     Route: 048
  2. IBUPROFEN [Suspect]
     Active Substance: IBUPROFEN
     Dosage: 400 MILLIGRAM, PRN (AS NECESSARY, OCCASIONALLY TOOK 400 OR 600 MG IBUPROFEN) CAPSULE
     Route: 065
  3. ACETAMINOPHEN [Suspect]
     Active Substance: ACETAMINOPHEN
     Indication: Headache
     Dosage: 1 GRAM, PRN (AS NECESSARY, OCCASIONALLY)
     Route: 065
  4. FENOFIBRATE [Concomitant]
     Active Substance: FENOFIBRATE
     Indication: Product used for unknown indication
     Dosage: UNK
     Route: 065

REACTIONS (6)
  - Optic ischaemic neuropathy [Not Recovered/Not Resolved]
  - Angioedema [Not Recovered/Not Resolved]
  - Orbital compartment syndrome [Not Recovered/Not Resolved]
  - Periorbital oedema [Not Recovered/Not Resolved]
  - Visual field defect [Not Recovered/Not Resolved]
  - Eyelid oedema [Recovered/Resolved]
